FAERS Safety Report 13111043 (Version 3)
Quarter: 2017Q1

REPORT INFORMATION
  Report Type: Spontaneous
  Country: PT (occurrence: PT)
  Receive Date: 20170112
  Receipt Date: 20170113
  Transmission Date: 20170428
  Serious: Yes (Hospitalization)
  Sender: FDA-Public Use
  Company Number: ALCN2016PT009893

PATIENT
  Age: 90 Year
  Sex: Male

DRUGS (1)
  1. TIMOLOL. [Suspect]
     Active Substance: TIMOLOL
     Indication: ANGLE CLOSURE GLAUCOMA
     Dosage: UNK
     Route: 047

REACTIONS (10)
  - Asthenia [Recovered/Resolved]
  - Conduction disorder [Recovered/Resolved]
  - Hypotension [Recovered/Resolved]
  - Presyncope [Recovered/Resolved]
  - Bradycardia [Recovered/Resolved]
  - Tremor [Recovered/Resolved]
  - Tachypnoea [Recovered/Resolved]
  - Hypothermia [Recovered/Resolved]
  - Haemodynamic instability [Recovered/Resolved]
  - Muscular weakness [Recovered/Resolved]
